FAERS Safety Report 18014745 (Version 2)
Quarter: 2020Q3

REPORT INFORMATION
  Report Type: Spontaneous
  Country: US (occurrence: US)
  Receive Date: 20200713
  Receipt Date: 20200728
  Transmission Date: 20201103
  Serious: Yes (Other)
  Sender: FDA-Public Use
  Company Number: US-PFIZER INC-2020264899

PATIENT
  Age: 50 Year
  Sex: Male

DRUGS (6)
  1. HEPARIN SODIUM. [Suspect]
     Active Substance: HEPARIN SODIUM
     Indication: PULMONARY EMBOLISM
     Dosage: 57000 IU, SINGLE
     Route: 042
     Dates: start: 19710303, end: 19710303
  2. HEPARIN SODIUM. [Suspect]
     Active Substance: HEPARIN SODIUM
     Indication: THROMBOPHLEBITIS
     Dosage: 45000 IU, DAILY
     Route: 042
     Dates: start: 19710304
  3. HEPARIN SODIUM. [Suspect]
     Active Substance: HEPARIN SODIUM
     Dosage: 20000 IU, DAILY
     Route: 042
     Dates: start: 19710327, end: 19710331
  4. HEPARIN SODIUM. [Suspect]
     Active Substance: HEPARIN SODIUM
     Dosage: 70000 IU, DAILY
     Route: 042
     Dates: start: 19710315
  5. HEPARIN SODIUM. [Suspect]
     Active Substance: HEPARIN SODIUM
     Dosage: 51000 IU, SINGLE
     Route: 042
     Dates: start: 19710313, end: 19710313
  6. HEPARIN SODIUM. [Suspect]
     Active Substance: HEPARIN SODIUM
     Dosage: 60000 IU, SINGLE
     Route: 042
     Dates: start: 19710314, end: 19710314

REACTIONS (7)
  - Acute myocardial infarction [Unknown]
  - Haemorrhage [Recovered/Resolved]
  - Melaena [Unknown]
  - Thrombosis [Unknown]
  - Ventricular tachycardia [Unknown]
  - Drug tolerance increased [Unknown]
  - Heparin-induced thrombocytopenia [Recovering/Resolving]

NARRATIVE: CASE EVENT DATE: 197103
